FAERS Safety Report 21592294 (Version 1)
Quarter: 2022Q4

REPORT INFORMATION
  Report Type: Spontaneous
  Country: US (occurrence: US)
  Receive Date: 20221114
  Receipt Date: 20221114
  Transmission Date: 20230113
  Serious: No
  Sender: FDA-Public Use
  Company Number: US-SA-SAC20221111000125

PATIENT
  Age: 2 Year
  Sex: Male

DRUGS (5)
  1. DUPIXENT [Suspect]
     Active Substance: DUPILUMAB
     Indication: Dermatitis atopic
     Dosage: 200 MG, QM
     Route: 058
     Dates: start: 20220728
  2. BENADRYL [Concomitant]
     Active Substance: DIPHENHYDRAMINE HYDROCHLORIDE
  3. EUCRISA [Concomitant]
     Active Substance: CRISABOROLE
  4. MOMETASONE [Concomitant]
     Active Substance: MOMETASONE
  5. TRIAZOLAM [Concomitant]
     Active Substance: TRIAZOLAM

REACTIONS (6)
  - Lethargy [Unknown]
  - Somnolence [Unknown]
  - Vomiting [Unknown]
  - Pyrexia [Unknown]
  - Chills [Unknown]
  - Crying [Unknown]

NARRATIVE: CASE EVENT DATE: 20220901
